FAERS Safety Report 9930998 (Version 2)
Quarter: 2014Q1

REPORT INFORMATION
  Report Type: Spontaneous
  Country: HR (occurrence: HR)
  Receive Date: 20140227
  Receipt Date: 20140326
  Transmission Date: 20141002
  Serious: Yes (Hospitalization)
  Sender: FDA-Public Use
  Company Number: HR-MERCK-1402HRV012070

PATIENT
  Age: 63 Year
  Sex: Male

DRUGS (3)
  1. PEGINTRON [Suspect]
     Indication: CHRONIC HEPATITIS C
     Dosage: UNK UNK, QW
     Route: 058
     Dates: start: 20131204
  2. VICTRELIS 200 MG TVRDE KAPSULE [Suspect]
     Indication: CHRONIC HEPATITIS C
     Dosage: 800 MG, TID
     Route: 048
     Dates: start: 20140115, end: 2014
  3. REBETOL [Suspect]
     Indication: CHRONIC HEPATITIS C
     Dosage: 3 CAPSULES IN THE MORNING AND 2 CAPSULES IN THE EVENING (REPORTED AS 3,0,2)
     Route: 048
     Dates: start: 20131204

REACTIONS (4)
  - Pneumonia legionella [Recovered/Resolved with Sequelae]
  - Clostridium test positive [Recovering/Resolving]
  - Pneumonia [Recovering/Resolving]
  - Drug effect incomplete [Unknown]
